FAERS Safety Report 17743651 (Version 2)
Quarter: 2020Q2

REPORT INFORMATION
  Report Type: Report from Study
  Country: US (occurrence: US)
  Receive Date: 20200505
  Receipt Date: 20200522
  Transmission Date: 20200714
  Serious: Yes (Death)
  Sender: FDA-Public Use
  Company Number: US-BIOGEN-2020BI00869288

PATIENT
  Age: 2 Year
  Sex: Female

DRUGS (2)
  1. SPINRAZA [Suspect]
     Active Substance: NUSINERSEN
     Indication: SPINAL MUSCULAR ATROPHY
     Dosage: FIRST 4 LOADING DOSES ON 20 OCT 2017
     Route: 065
     Dates: start: 20171020
  2. GLYDOLAX [Concomitant]
     Indication: CONSTIPATION
     Route: 065

REACTIONS (2)
  - Bronchial secretion retention [Fatal]
  - Aspiration [Fatal]

NARRATIVE: CASE EVENT DATE: 20200326
